FAERS Safety Report 5189797-3 (Version None)
Quarter: 2006Q4

REPORT INFORMATION
  Report Type: 
  Country: None (occurrence: None)
  Receive Date: 20061218
  Receipt Date: 20061205
  Transmission Date: 20070319
  Serious: Yes (Hospitalization)
  Sender: FDA-Public Use
  Company Number: 233614

PATIENT
  Age: 64 Year
  Sex: Female

DRUGS (12)
  1. BEVACIZUMAB(BEVACIZUMAB) PWDR + SOLVENT,INFUSION SOLN, 100MG [Suspect]
     Indication: BREAST CANCER
     Dosage: 710 MG, INTRAVENOUS
     Route: 042
     Dates: start: 20060925, end: 20061106
  2. ADRIAMYCIN PFS [Suspect]
     Indication: BREAST CANCER
     Dosage: 105 MG, INTRAVENOUS
     Route: 042
     Dates: start: 20060925, end: 20061106
  3. CYTOXAN [Suspect]
     Indication: BREAST CANCER
     Dosage: 1050 MG, INTRAVENOUS
     Route: 042
     Dates: start: 20060925, end: 20061106
  4. STUDY DRUGS NOS (INVESTIGATIONAL DRUG) [Suspect]
     Indication: BREAST CANCER
     Dosage: 436 MG, INTRAVENOUS
     Route: 042
     Dates: start: 20061120, end: 20061120
  5. PEGFILGRASTIM [Concomitant]
  6. LIPITOR [Concomitant]
  7. CELEBREX [Concomitant]
  8. COZAAR [Concomitant]
  9. HYDROCHLOROTHIAZIDE [Concomitant]
  10. EFFEXOR [Concomitant]
  11. EMEND [Concomitant]
  12. COMPAZINE [Concomitant]

REACTIONS (1)
  - AUTONOMIC NERVOUS SYSTEM IMBALANCE [None]
